FAERS Safety Report 4423098-3 (Version None)
Quarter: 2004Q3

REPORT INFORMATION
  Report Type: 
  Country: None (occurrence: None)
  Receive Date: 20040713
  Receipt Date: 20030905
  Transmission Date: 20050211
  Serious: No
  Sender: FDA-Public Use
  Company Number: PHEH2003US08117

PATIENT
  Age: 2 Year
  Sex: Female

DRUGS (2)
  1. ELIDEL [Suspect]
     Indication: DERMATITIS ATOPIC
     Dosage: TOPICAL
     Route: 061
     Dates: start: 20030501
  2. ZYRTEC [Concomitant]

REACTIONS (4)
  - APPLICATION SITE DISCOLOURATION [None]
  - DRY SKIN [None]
  - PRURITUS [None]
  - SKIN INFLAMMATION [None]
